FAERS Safety Report 7943273-0 (Version None)
Quarter: 2011Q4

REPORT INFORMATION
  Report Type: 
  Country: None (occurrence: None)
  Receive Date: 20111128
  Receipt Date: 20111118
  Transmission Date: 20120403
  Serious: Yes (Other)
  Sender: FDA-Public Use
  Company Number: PHHY2011BR102038

PATIENT
  Sex: Male

DRUGS (9)
  1. RIPILEX [Suspect]
     Indication: HYPERTENSION
     Dosage: 1 DF, AT LUNCH
  2. RIPILEX [Suspect]
     Indication: HYPERCOAGULATION
  3. RIPILEX [Suspect]
     Indication: OBESITY
  4. COUMADIN [Suspect]
     Indication: OBESITY
  5. COUMADIN [Suspect]
     Indication: CEREBROVASCULAR ACCIDENT
  6. RIPILEX [Suspect]
     Indication: CEREBROVASCULAR ACCIDENT
  7. COUMADIN [Suspect]
     Indication: HYPERTENSION
     Dosage: 1 MG, UNK
  8. COUMADIN [Suspect]
     Indication: HYPERCOAGULATION
  9. DIOVAN [Suspect]
     Indication: HYPERTENSION
     Dosage: 2 DF(160 MG), DAILY
     Dates: start: 20050101

REACTIONS (1)
  - DIABETES MELLITUS [None]
